FAERS Safety Report 20372647 (Version 3)
Quarter: 2023Q2

REPORT INFORMATION
  Report Type: Other
  Country: US (occurrence: None)
  Receive Date: 20220125
  Receipt Date: 20230411
  Transmission Date: 20230722
  Serious: Yes (Death)
  Sender: FDA-Public Use
  Company Number: US-ROCHE-3005960

PATIENT
  Age: 72 Year
  Sex: Male

DRUGS (4)
  1. RITUXAN [Suspect]
     Active Substance: RITUXIMAB
     Indication: B-cell lymphoma stage I
     Dosage: INFUSE 693.8MG INTRAVENOUSLY ON DAYS 1, 8, 15, 22 EVERY 28 DAY(S)?VIAL
     Route: 042
  2. RITUXAN [Suspect]
     Active Substance: RITUXIMAB
     Indication: Follicular lymphoma
     Dosage: INFUSE 693.8MG INTRAVENOUSLY ON DAYS 1, 8, 15, 22 EVERY 28 DAY(S)?VIAL
     Route: 042
  3. RITUXAN HYCELA [Suspect]
     Active Substance: HYALURONIDASE (HUMAN RECOMBINANT)\RITUXIMAB
     Indication: Product used for unknown indication
     Dosage: INJECT 1400MG SUBCUTANEOUSLY EVERY 56 DAY(S) FOR 12 DOSES
     Route: 058
  4. REVLIMID [Concomitant]
     Active Substance: LENALIDOMIDE

REACTIONS (1)
  - Death [Fatal]

NARRATIVE: CASE EVENT DATE: 20220115
